FAERS Safety Report 5876620-4 (Version None)
Quarter: 2008Q3

REPORT INFORMATION
  Report Type: 
  Country: None (occurrence: None)
  Receive Date: 20080910
  Receipt Date: 20080904
  Transmission Date: 20090109
  Serious: Yes (Hospitalization, Other)
  Sender: FDA-Public Use
  Company Number: US-ROCHE-512823

PATIENT
  Sex: Female
  Weight: 70.3 kg

DRUGS (13)
  1. ACCUTANE [Suspect]
     Indication: ACNE
     Dosage: SHE WAS TAKING ACCUTANE 20 MG IN MORNING AND 40 MG AT NIGHT.
     Route: 048
     Dates: start: 19990827, end: 20000304
  2. ADVIL [Concomitant]
     Indication: DRUG USE FOR UNKNOWN INDICATION
     Dates: start: 20000301
  3. PREVACID [Concomitant]
     Indication: GASTRIC ULCER
  4. PRILOSEC [Concomitant]
     Indication: GASTRIC ULCER
  5. CELEBREX [Concomitant]
     Indication: BACK PAIN
  6. ACIPHEX [Concomitant]
  7. NEXIUM [Concomitant]
  8. ANTIBIOTIC NOS [Concomitant]
     Indication: ACNE
  9. BIRTH CONTROL PILL [Concomitant]
  10. PROTONIX [Concomitant]
  11. KEFLEX [Concomitant]
  12. BENZAMYCIN [Concomitant]
     Indication: ACNE
     Dates: start: 19980312
  13. ZANTAC [Concomitant]
     Indication: ULCER
     Dates: start: 19990301

REACTIONS (22)
  - ANXIETY [None]
  - BILE DUCT STENOSIS [None]
  - CHOLANGITIS SCLEROSING [None]
  - COLITIS [None]
  - COLITIS ULCERATIVE [None]
  - COSTOCHONDRITIS [None]
  - DEPRESSED MOOD [None]
  - FATIGUE [None]
  - GASTROINTESTINAL DISORDER [None]
  - INFLAMMATORY BOWEL DISEASE [None]
  - INSOMNIA [None]
  - JOINT INSTABILITY [None]
  - PALPITATIONS [None]
  - PANCREATITIS CHRONIC [None]
  - PANIC ATTACK [None]
  - PRURITUS [None]
  - RHINORRHOEA [None]
  - ROTATOR CUFF SYNDROME [None]
  - SHOULDER OPERATION [None]
  - SNEEZING [None]
  - SUICIDAL IDEATION [None]
  - TENDONITIS [None]
